FAERS Safety Report 18178265 (Version 1)
Quarter: 2020Q3

REPORT INFORMATION
  Report Type: Spontaneous
  Country: DE (occurrence: DE)
  Receive Date: 20200820
  Receipt Date: 20200820
  Transmission Date: 20201103
  Serious: Yes (Hospitalization)
  Sender: FDA-Public Use
  Company Number: DE-MYLANLABS-2020M1071795

PATIENT
  Age: 60 Year
  Sex: Male
  Weight: 78.2 kg

DRUGS (5)
  1. CARBAMAZEPINE. [Suspect]
     Active Substance: CARBAMAZEPINE
     Indication: PRODUCT USED FOR UNKNOWN INDICATION
     Dosage: 400 MILLIGRAM, QD (400 MG, 0.5?0?0.5?0, TABLETTEN)
     Route: 048
  2. METOPROLOL. [Suspect]
     Active Substance: METOPROLOL
     Indication: PRODUCT USED FOR UNKNOWN INDICATION
     Dosage: 100 MILLIGRAM, QD (100 MG, 1?0?0?0, RETARD?TABLETTEN)
     Route: 048
  3. ACETYLSALICYLSAEURE [Concomitant]
     Active Substance: ASPIRIN
     Dosage: 100 MILLIGRAM, QD (100 MG, 0?1?0?0, TABLETTEN)
     Route: 048
  4. SIMVASTATIN. [Concomitant]
     Active Substance: SIMVASTATIN
     Dosage: 20 MILLIGRAM, QD (20 MG, 0?0?1?0, TABLETTEN)
     Route: 048
  5. LEVETIRACETAM. [Concomitant]
     Active Substance: LEVETIRACETAM
     Dosage: 1000 MILLIGRAM, BID (1000 MG, 1?0?1?0, TABLETTEN)
     Route: 048

REACTIONS (6)
  - Weight decreased [Unknown]
  - Dyspnoea [Unknown]
  - Pain in extremity [Unknown]
  - Peripheral swelling [Unknown]
  - Decreased appetite [Unknown]
  - Musculoskeletal pain [Unknown]
